FAERS Safety Report 9630175 (Version 4)
Quarter: 2013Q4

REPORT INFORMATION
  Report Type: Spontaneous
  Country: BR (occurrence: BR)
  Receive Date: 20131017
  Receipt Date: 20131224
  Transmission Date: 20140711
  Serious: Yes (Life-Threatening, Hospitalization, Other)
  Sender: FDA-Public Use
  Company Number: PHHY2013BR115662

PATIENT
  Age: 63 Year
  Sex: Female
  Weight: 90 kg

DRUGS (4)
  1. FORASEQ [Suspect]
     Indication: ASTHMA
     Dosage: 4 DF (2 CAPSULES OF TREATMENT 1 AND 2 CAPSULES OF TREATMENT 2 EVERY 12 HOURS), DAILY
     Route: 055
  2. ALENIA [Suspect]
     Indication: ASTHMA
     Dosage: 2 DF (2 CAPSULES A DAY), EVERY 12 HRS
     Route: 055
  3. METFORMIN [Concomitant]
     Indication: DIABETES MELLITUS
     Dosage: 3 DF, DAILY
     Route: 048
  4. NAPRIX [Concomitant]
     Indication: HYPERTENSION
     Dosage: 1 DF, DAILY
     Route: 048

REACTIONS (6)
  - Apparent death [Unknown]
  - Oxygen saturation decreased [Unknown]
  - Asthma [Recovered/Resolved]
  - Device malfunction [Unknown]
  - Wrong technique in drug usage process [Unknown]
  - Incorrect dose administered [Unknown]
